FAERS Safety Report 15959290 (Version 1)
Quarter: 2019Q1

REPORT INFORMATION
  Report Type: Spontaneous
  Country: US (occurrence: US)
  Receive Date: 20190214
  Receipt Date: 20190214
  Transmission Date: 20190417
  Serious: Yes (Other)
  Sender: FDA-Public Use
  Company Number: US-AMGEN-USASP2019019979

PATIENT
  Age: 74 Year
  Sex: Female
  Weight: 47.17 kg

DRUGS (1)
  1. PROLIA [Suspect]
     Active Substance: DENOSUMAB
     Indication: PROGRESSIVE SUPRANUCLEAR PALSY
     Dosage: 60 MG, Q6MO
     Route: 058
     Dates: start: 20181109

REACTIONS (3)
  - Off label use [Unknown]
  - Progressive supranuclear palsy [Unknown]
  - Drooling [Unknown]

NARRATIVE: CASE EVENT DATE: 20181109
